FAERS Safety Report 23197909 (Version 1)
Quarter: 2023Q4

REPORT INFORMATION
  Report Type: Spontaneous
  Country: US (occurrence: None)
  Receive Date: 20231117
  Receipt Date: 20231117
  Transmission Date: 20240110
  Serious: Yes (Other)
  Sender: FDA-Public Use
  Company Number: None

PATIENT
  Age: 46 Year
  Sex: Female
  Weight: 77.4 kg

DRUGS (1)
  1. LISDEXAMFETAMINE [Suspect]
     Active Substance: LISDEXAMFETAMINE
     Indication: Binge eating
     Dosage: FREQUENCY : DAILY;?
     Route: 048
     Dates: start: 20231003, end: 20231103

REACTIONS (4)
  - Depressed mood [None]
  - Irritability [None]
  - Binge eating [None]
  - Condition aggravated [None]

NARRATIVE: CASE EVENT DATE: 20231003
